FAERS Safety Report 16044549 (Version 3)
Quarter: 2020Q4

REPORT INFORMATION
  Report Type: Spontaneous
  Country: US (occurrence: US)
  Receive Date: 20190306
  Receipt Date: 20201223
  Transmission Date: 20210113
  Serious: Yes (Hospitalization, Other)
  Sender: FDA-Public Use
  Company Number: US-AMGEN-USASP2019033222

PATIENT
  Age: 86 Year
  Sex: Female
  Weight: 67.7 kg

DRUGS (1)
  1. PROLIA [Suspect]
     Active Substance: DENOSUMAB
     Indication: OSTEOPOROSIS
     Dosage: 60 MG, Q6MO
     Route: 065
     Dates: start: 201604

REACTIONS (4)
  - Femur fracture [Not Recovered/Not Resolved]
  - Tendonitis [Not Recovered/Not Resolved]
  - Soft tissue swelling [Unknown]
  - Stress fracture [Recovered/Resolved]

NARRATIVE: CASE EVENT DATE: 201811
